FAERS Safety Report 11277926 (Version 3)
Quarter: 2016Q1

REPORT INFORMATION
  Report Type: Report from Study
  Country: US (occurrence: US)
  Receive Date: 20150716
  Receipt Date: 20160211
  Transmission Date: 20160525
  Serious: Yes (Hospitalization)
  Sender: FDA-Public Use
  Company Number: US-AMGEN-USASL2015056394

PATIENT
  Age: 58 Year
  Sex: Female

DRUGS (2)
  1. LOPRESSOR [Concomitant]
     Active Substance: METOPROLOL TARTRATE
     Indication: BLOOD PRESSURE MEASUREMENT
     Dosage: 25 MG, TWICE A DAY
  2. KYPROLIS [Suspect]
     Active Substance: CARFILZOMIB
     Indication: PLASMA CELL MYELOMA
     Dosage: UNK UNK, TWICE A WEEK
     Route: 042
     Dates: end: 20160128

REACTIONS (5)
  - Drug tolerance decreased [Unknown]
  - Pyrexia [Recovered/Resolved]
  - Pneumonia [Unknown]
  - Bronchitis [Recovering/Resolving]
  - Nasopharyngitis [Not Recovered/Not Resolved]

NARRATIVE: CASE EVENT DATE: 20150604
